FAERS Safety Report 16326040 (Version 1)
Quarter: 2019Q2

REPORT INFORMATION
  Report Type: Spontaneous
  Country: ES (occurrence: ES)
  Receive Date: 20190517
  Receipt Date: 20190517
  Transmission Date: 20190711
  Serious: Yes (Hospitalization)
  Sender: FDA-Public Use
  Company Number: ES-MYLANLABS-2019M1046083

PATIENT
  Age: 94 Year
  Sex: Female

DRUGS (8)
  1. DOLOCATIL [Concomitant]
     Active Substance: ACETAMINOPHEN
     Dosage: UNK
  2. LORMETAZEPAM TEVA [Concomitant]
     Dosage: UNK
  3. SIMVASTATINA TEVA [Concomitant]
     Dosage: 10 MILLIGRAM, QD
     Route: 048
  4. LOSARTAN STADA [Concomitant]
     Dosage: 100 MILLIGRAM, QD
     Route: 048
  5. OMEPRAZOL CINFA [Concomitant]
     Dosage: 20 MILLIGRAM, QD
     Route: 048
  6. FUROSEMIDA CINFA [Concomitant]
     Active Substance: FUROSEMIDE
     Dosage: 40 MILLIGRAM, QD
     Route: 048
  7. SINTROM [Interacting]
     Active Substance: ACENOCOUMAROL
     Indication: ATRIAL FIBRILLATION
     Dosage: SPL
     Route: 048
     Dates: start: 2011, end: 20180820
  8. PAROXETINA MYLAN 20 MG COMPRIMIDOS REVESTIDOS POR PEL?CULA [Suspect]
     Active Substance: PAROXETINE
     Indication: DEPRESSION
     Dosage: 20 MILLIGRAM, QD
     Route: 048
     Dates: start: 2018

REACTIONS (2)
  - Rectal haemorrhage [Recovered/Resolved]
  - Drug interaction [Unknown]

NARRATIVE: CASE EVENT DATE: 20180820
